FAERS Safety Report 6805171-5 (Version None)
Quarter: 2010Q2

REPORT INFORMATION
  Report Type: 
  Country: None (occurrence: None)
  Receive Date: 20100628
  Receipt Date: 20071127
  Transmission Date: 20101027
  Serious: No
  Sender: FDA-Public Use
  Company Number: US-PFIZER INC-2007080089

PATIENT
  Sex: Female
  Weight: 68.04 kg

DRUGS (6)
  1. GEODON [Suspect]
     Indication: BIPOLAR DISORDER
     Dates: start: 20070901, end: 20070921
  2. EFFEXOR [Concomitant]
  3. WELLBUTRIN [Concomitant]
  4. TOPROL-XL [Concomitant]
     Indication: BLOOD PRESSURE
  5. LAMICTAL [Concomitant]
     Indication: BIPOLAR DISORDER
  6. FIORICET [Concomitant]
     Indication: HEADACHE

REACTIONS (11)
  - BLOOD PRESSURE INCREASED [None]
  - CRYING [None]
  - DIARRHOEA [None]
  - HAEMATOCHEZIA [None]
  - HEADACHE [None]
  - HYPOAESTHESIA [None]
  - MUSCLE SPASMS [None]
  - PAIN [None]
  - PRURITUS [None]
  - PYREXIA [None]
  - UNEVALUABLE EVENT [None]
